FAERS Safety Report 4770624-0 (Version None)
Quarter: 2005Q3

REPORT INFORMATION
  Report Type: 
  Country: None (occurrence: None)
  Receive Date: 20050915
  Receipt Date: 20050511
  Transmission Date: 20060218
  Serious: Yes (Hospitalization)
  Sender: FDA-Public Use
  Company Number: US-MERCK-0505USA01538

PATIENT
  Age: 54 Year
  Sex: Female
  Weight: 53 kg

DRUGS (19)
  1. VIOXX [Suspect]
     Indication: SYSTEMIC LUPUS ERYTHEMATOSUS
     Route: 048
     Dates: start: 19990101, end: 20040501
  2. LEVOXYL [Concomitant]
     Route: 065
  3. SEREVENT [Concomitant]
     Route: 065
  4. FLOVENT [Concomitant]
     Route: 065
  5. HYDROXYCHLOROQUINE SULFATE [Concomitant]
     Indication: SYSTEMIC LUPUS ERYTHEMATOSUS
     Route: 065
  6. SINGULAIR [Concomitant]
     Route: 065
  7. ALLEGRA [Concomitant]
     Route: 065
  8. ACIPHEX [Concomitant]
     Route: 065
  9. PREDNISONE [Concomitant]
     Route: 065
  10. AMBIEN [Concomitant]
     Route: 065
  11. PRILOSEC [Concomitant]
     Indication: GASTROOESOPHAGEAL REFLUX DISEASE
     Route: 065
  12. COMBIVENT [Concomitant]
     Route: 065
  13. ZYRTEC [Concomitant]
     Route: 065
  14. ADVAIR DISKUS 100/50 [Concomitant]
     Indication: CHRONIC OBSTRUCTIVE PULMONARY DISEASE
     Route: 065
  15. OXYCODONE [Concomitant]
     Route: 065
  16. OXYCONTIN [Concomitant]
     Route: 065
  17. TYLENOL [Concomitant]
     Indication: HEADACHE
     Route: 065
  18. METHADONE HYDROCHLORIDE [Concomitant]
     Route: 065
  19. HYDROCODONE HYDROCHLORIDE [Concomitant]
     Route: 065

REACTIONS (4)
  - BACK DISORDER [None]
  - CEREBROVASCULAR ACCIDENT [None]
  - GALLBLADDER DISORDER [None]
  - THYROID DISORDER [None]
